FAERS Safety Report 10798665 (Version 1)
Quarter: 2015Q1

REPORT INFORMATION
  Report Type: Spontaneous
  Country: US (occurrence: US)
  Receive Date: 20150216
  Receipt Date: 20150216
  Transmission Date: 20150721
  Serious: Yes (Hospitalization)
  Sender: FDA-Public Use
  Company Number: US-TEVA-540808USA

PATIENT
  Sex: Female
  Weight: 63.11 kg

DRUGS (1)
  1. PROVIGIL [Suspect]
     Active Substance: MODAFINIL
     Indication: CHRONIC FATIGUE SYNDROME
     Dosage: UNKNOWN STRENGTH

REACTIONS (2)
  - Hyponatraemia [Unknown]
  - Blood potassium decreased [Unknown]
